FAERS Safety Report 4492164-9 (Version None)
Quarter: 2004Q4

REPORT INFORMATION
  Report Type: 
  Country: None (occurrence: None)
  Receive Date: 20041103
  Receipt Date: 20040828
  Transmission Date: 20050328
  Serious: Yes (Life-Threatening, Other)
  Sender: FDA-Public Use
  Company Number: ZW-GLAXOSMITHKLINE-B0344593A

PATIENT
  Age: 37 Year
  Sex: Male

DRUGS (6)
  1. TRIZIVIR [Suspect]
     Indication: HIV INFECTION
     Dosage: 1TAB TWICE PER DAY
     Route: 048
     Dates: start: 20040122
  2. RIFAMPICIN [Suspect]
     Indication: PULMONARY TUBERCULOSIS
     Dosage: 450MG PER DAY
     Dates: start: 20040219, end: 20040401
  3. ISONIAZID [Suspect]
     Indication: PULMONARY TUBERCULOSIS
     Dosage: 300MG PER DAY
     Dates: start: 20040219
  4. PYRAZINAMIDE [Suspect]
     Indication: PULMONARY TUBERCULOSIS
     Dosage: 1.5G PER DAY
     Dates: start: 20040219, end: 20040401
  5. ETHAMBUTOL HYDROCHLORIDE [Suspect]
     Indication: PULMONARY TUBERCULOSIS
     Dosage: 800MG PER DAY
     Dates: start: 20040219
  6. CO-TRIMOXAZOLE [Concomitant]
     Indication: PROPHYLAXIS
     Dosage: 960MG PER DAY
     Dates: start: 20031211

REACTIONS (6)
  - ALANINE AMINOTRANSFERASE INCREASED [None]
  - HEPATOTOXICITY [None]
  - IMMUNE RECONSTITUTION SYNDROME [None]
  - JAUNDICE [None]
  - PULMONARY TUBERCULOSIS [None]
  - PYREXIA [None]
